FAERS Safety Report 11336822 (Version 1)
Quarter: 2015Q3

REPORT INFORMATION
  Report Type: Other
  Country: GB (occurrence: GB)
  Receive Date: 20150804
  Receipt Date: 20150804
  Transmission Date: 20151125
  Serious: Yes (Other)
  Sender: FDA-Public Use
  Company Number: GB-MYLANLABS-2015M1024936

PATIENT

DRUGS (3)
  1. BISOPROLOL FUMARATE. [Suspect]
     Active Substance: BISOPROLOL FUMARATE
     Dosage: 2.5 G, 1X/DAY
     Route: 048
  2. ELIQUIS [Suspect]
     Active Substance: APIXABAN
     Indication: CEREBROVASCULAR ACCIDENT PROPHYLAXIS
     Dosage: 5 MG, 2X/DAY
     Route: 048
     Dates: start: 20141119
  3. LEVOTHYROXINE. [Suspect]
     Active Substance: LEVOTHYROXINE
     Dosage: 100 MG, 1X/DAY
     Route: 065

REACTIONS (1)
  - Conjunctival haemorrhage [Recovered/Resolved]

NARRATIVE: CASE EVENT DATE: 20150516
